FAERS Safety Report 13718488 (Version 1)
Quarter: 2017Q3

REPORT INFORMATION
  Report Type: Spontaneous
  Country: GB (occurrence: GB)
  Receive Date: 20170705
  Receipt Date: 20170705
  Transmission Date: 20171127
  Serious: Yes (Other)
  Sender: FDA-Public Use
  Company Number: GB-PFIZER INC-2017285086

PATIENT
  Sex: Male

DRUGS (1)
  1. PREGABALIN. [Suspect]
     Active Substance: PREGABALIN
     Dosage: UNK

REACTIONS (6)
  - Counterfeit drug administered [Unknown]
  - Hypokinesia [Unknown]
  - Consciousness fluctuating [Unknown]
  - Palpitations [Unknown]
  - Speech disorder [Unknown]
  - Tremor [Unknown]
